FAERS Safety Report 18067557 (Version 1)
Quarter: 2020Q3

REPORT INFORMATION
  Report Type: Spontaneous
  Country: CN (occurrence: CN)
  Receive Date: 20200724
  Receipt Date: 20200724
  Transmission Date: 20201103
  Serious: Yes (Other)
  Sender: FDA-Public Use
  Company Number: CN-BAYER-2020-147447

PATIENT
  Age: 63 Year
  Sex: Male

DRUGS (75)
  1. IODINATED OIL [Concomitant]
     Active Substance: IODINE
     Dosage: 5 ML
     Dates: start: 20200709, end: 20200709
  2. OXALIPLATIN. [Concomitant]
     Active Substance: OXALIPLATIN
     Dosage: 100 MG
     Dates: start: 20181211
  3. OXALIPLATIN. [Concomitant]
     Active Substance: OXALIPLATIN
     Dosage: 100 MG
     Dates: start: 20190409
  4. ENTECAVIR. [Concomitant]
     Active Substance: ENTECAVIR
     Dosage: UNK
     Route: 048
     Dates: start: 20190212
  5. ENTECAVIR. [Concomitant]
     Active Substance: ENTECAVIR
     Dosage: UNK
     Route: 048
     Dates: start: 20190702
  6. HUAI ER KE LI [Concomitant]
     Dosage: UNK
     Route: 048
     Dates: start: 20181211
  7. HUAI ER KE LI [Concomitant]
     Dosage: UNK
     Route: 048
     Dates: start: 20200511
  8. NEXAVAR [Suspect]
     Active Substance: SORAFENIB
     Indication: HEPATOCELLULAR CARCINOMA
     Dosage: 400 MG, BID
     Route: 048
     Dates: start: 20191015, end: 20200215
  9. STIVARGA [Suspect]
     Active Substance: REGORAFENIB
     Indication: HEPATOCELLULAR CARCINOMA
     Dosage: 120?160 MG, QD  (TOOK 3 WEEKS AND STOP 1 WEEK, 4 WEEKS PER TREATMENT COURSE)
     Route: 048
     Dates: start: 20200714
  10. IODINATED OIL [Concomitant]
     Active Substance: IODINE
     Dosage: 25 ML
     Dates: start: 20180712, end: 20180712
  11. OXALIPLATIN. [Concomitant]
     Active Substance: OXALIPLATIN
     Dosage: 100 MG
     Dates: start: 20190702
  12. HUAI ER KE LI [Concomitant]
     Dosage: UNK
     Route: 048
     Dates: start: 20190409
  13. HUAI ER KE LI [Concomitant]
     Dosage: UNK
     Route: 048
     Dates: start: 20200204
  14. NEXAVAR [Suspect]
     Active Substance: SORAFENIB
     Indication: HEPATOCELLULAR CARCINOMA
     Dosage: 400 MG, BID
     Route: 048
     Dates: start: 20180821
  15. NEXAVAR [Suspect]
     Active Substance: SORAFENIB
     Indication: HEPATOCELLULAR CARCINOMA
     Dosage: 400 MG, BID
     Route: 048
     Dates: start: 20190212
  16. STIVARGA [Suspect]
     Active Substance: REGORAFENIB
     Indication: HEPATOCELLULAR CARCINOMA
     Dosage: 120?160 MG, QD  (TOOK 3 WEEKS AND STOP 1 WEEK, 4 WEEKS PER TREATMENT COURSE)
     Route: 048
     Dates: start: 20200215
  17. IODINATED OIL [Concomitant]
     Active Substance: IODINE
     Dosage: 10 ML
     Dates: start: 20190702, end: 20190702
  18. OXALIPLATIN. [Concomitant]
     Active Substance: OXALIPLATIN
     Dosage: 100 MG
     Dates: start: 20180522
  19. OXALIPLATIN. [Concomitant]
     Active Substance: OXALIPLATIN
     Dosage: 100 MG
     Dates: start: 20200511
  20. HUAI ER KE LI [Concomitant]
     Dosage: UNK
     Route: 048
     Dates: start: 20190702
  21. GELFOAM [Concomitant]
     Active Substance: GELATIN\THROMBIN HUMAN
     Dosage: 700 UM
     Dates: start: 20200709
  22. RALTITREXED [Concomitant]
     Active Substance: RALTITREXED
     Dosage: 4 MG VIA BRONCHIAL ARTERIAL INFUSION
     Dates: start: 20200511
  23. RALTITREXED [Concomitant]
     Active Substance: RALTITREXED
     Dosage: 4 MG VIA BRONCHIAL ARTERIAL INFUSION
     Dates: start: 20200709
  24. NEXAVAR [Suspect]
     Active Substance: SORAFENIB
     Indication: HEPATOCELLULAR CARCINOMA
     Dosage: 400 MG, BID
     Route: 048
     Dates: start: 20181017
  25. NEXAVAR [Suspect]
     Active Substance: SORAFENIB
     Indication: HEPATOCELLULAR CARCINOMA
     Dosage: 400 MG, BID
     Route: 048
     Dates: start: 20181211
  26. IODINATED OIL [Concomitant]
     Active Substance: IODINE
     Dosage: 16 ML
     Dates: start: 20171211, end: 20171211
  27. OXALIPLATIN. [Concomitant]
     Active Substance: OXALIPLATIN
     Dosage: 100 MG
     Dates: start: 20200709
  28. ENTECAVIR. [Concomitant]
     Active Substance: ENTECAVIR
     Dosage: UNK
     Route: 048
     Dates: start: 20181017
  29. ENTECAVIR. [Concomitant]
     Active Substance: ENTECAVIR
     Dosage: UNK
     Route: 048
     Dates: start: 20191015
  30. ENTECAVIR. [Concomitant]
     Active Substance: ENTECAVIR
     Dosage: UNK
     Route: 048
     Dates: start: 20200709
  31. HUAI ER KE LI [Concomitant]
     Dosage: UNK
     Route: 048
     Dates: start: 20171211
  32. HUAI ER KE LI [Concomitant]
     Dosage: UNK
     Route: 048
     Dates: start: 20190212
  33. HUAI ER KE LI [Concomitant]
     Dosage: UNK
     Route: 048
     Dates: start: 20191015
  34. GELFOAM [Concomitant]
     Active Substance: GELATIN\THROMBIN HUMAN
     Dosage: 500?700 UM
     Dates: start: 20180522
  35. PVA [Concomitant]
     Dosage: 300?500UM
     Dates: start: 20180712
  36. PVA [Concomitant]
     Dosage: 300?500UM; 500?700UM
     Dates: start: 20181017
  37. STIVARGA [Suspect]
     Active Substance: REGORAFENIB
     Indication: HEPATOCELLULAR CARCINOMA
     Dosage: 120?160 MG, QD  (TOOK 3 WEEKS AND STOP 1 WEEK, 4 WEEKS PER TREATMENT COURSE)
     Route: 048
     Dates: start: 20200511
  38. IODINATED OIL [Concomitant]
     Active Substance: IODINE
     Dosage: 20 ML
     Dates: start: 20190212, end: 20190212
  39. IODINATED OIL [Concomitant]
     Active Substance: IODINE
     Dosage: 5 ML
     Dates: start: 20191015, end: 20191015
  40. IODINATED OIL [Concomitant]
     Active Substance: IODINE
     Dosage: 5 ML
     Dates: start: 20200204, end: 20200204
  41. IODINATED OIL [Concomitant]
     Active Substance: IODINE
     Dosage: 5 ML
     Dates: start: 20200511, end: 20200511
  42. OXALIPLATIN. [Concomitant]
     Active Substance: OXALIPLATIN
     Dosage: 100 MG
     Dates: start: 20181017
  43. OXALIPLATIN. [Concomitant]
     Active Substance: OXALIPLATIN
     Dosage: 100 MG
     Dates: start: 20200204
  44. HUAI ER KE LI [Concomitant]
     Dosage: UNK
     Route: 048
     Dates: start: 20180712
  45. PVA [Concomitant]
     Dosage: 300?500UM
     Dates: start: 20190212
  46. PVA [Concomitant]
     Dosage: 300?500UM
     Dates: start: 20200204
  47. NEXAVAR [Suspect]
     Active Substance: SORAFENIB
     Indication: HEPATOCELLULAR CARCINOMA
     Dosage: 400 MG, BID
     Route: 048
     Dates: start: 20180720
  48. NEXAVAR [Suspect]
     Active Substance: SORAFENIB
     Indication: HEPATOCELLULAR CARCINOMA
     Dosage: 400 MG, BID
     Route: 048
     Dates: start: 20190409
  49. NEXAVAR [Suspect]
     Active Substance: SORAFENIB
     Indication: HEPATOCELLULAR CARCINOMA
     Dosage: 400 MG, BID
     Route: 048
     Dates: start: 20190702
  50. OXALIPLATIN. [Concomitant]
     Active Substance: OXALIPLATIN
     Dosage: 50 MG
     Dates: start: 20171211
  51. OXALIPLATIN. [Concomitant]
     Active Substance: OXALIPLATIN
     Dosage: 100 MG
     Dates: start: 20180821
  52. OXALIPLATIN. [Concomitant]
     Active Substance: OXALIPLATIN
     Dosage: 100 MG
     Dates: start: 20190212
  53. OXALIPLATIN. [Concomitant]
     Active Substance: OXALIPLATIN
     Dosage: 100 MG
     Dates: start: 20191015
  54. ENTECAVIR. [Concomitant]
     Active Substance: ENTECAVIR
     Dosage: UNK
     Route: 048
     Dates: start: 20180712
  55. HUAI ER KE LI [Concomitant]
     Dosage: UNK
     Route: 048
     Dates: start: 20200709
  56. ETHYL ALCOHOL [Concomitant]
     Active Substance: ALCOHOL
     Dosage: 4 ML
     Dates: start: 20180522
  57. DOXORUBICIN [Concomitant]
     Active Substance: DOXORUBICIN
     Dosage: 20 MG
     Dates: start: 20180712
  58. PVA [Concomitant]
     Dosage: 300?500UM
     Dates: start: 20191015
  59. IODINATED OIL [Concomitant]
     Active Substance: IODINE
     Dosage: 20 ML
     Dates: start: 20180522, end: 20180522
  60. IODINATED OIL [Concomitant]
     Active Substance: IODINE
     Dosage: 20 ML
     Dates: start: 20180821, end: 20180821
  61. ENTECAVIR. [Concomitant]
     Active Substance: ENTECAVIR
     Dosage: UNK
     Route: 048
     Dates: start: 20171211
  62. ENTECAVIR. [Concomitant]
     Active Substance: ENTECAVIR
     Dosage: UNK
     Route: 048
     Dates: start: 20180821
  63. HUAI ER KE LI [Concomitant]
     Dosage: UNK
     Route: 048
     Dates: start: 20180821
  64. GELFOAM [Concomitant]
     Active Substance: GELATIN\THROMBIN HUMAN
     Dosage: 700 UM
     Dates: start: 20200511
  65. PVA [Concomitant]
     Dosage: 300?500UM; 500?700UM
     Dates: start: 20180821
  66. IODINATED OIL [Concomitant]
     Active Substance: IODINE
     Dosage: 20 ML
     Dates: start: 20181017, end: 20181017
  67. IODINATED OIL [Concomitant]
     Active Substance: IODINE
     Dosage: 20 ML
     Dates: start: 20181211, end: 20181211
  68. IODINATED OIL [Concomitant]
     Active Substance: IODINE
     Dosage: 10 ML
     Dates: start: 20190409, end: 20190409
  69. ENTECAVIR. [Concomitant]
     Active Substance: ENTECAVIR
     Dosage: UNK
     Route: 048
     Dates: start: 20181211
  70. ENTECAVIR. [Concomitant]
     Active Substance: ENTECAVIR
     Dosage: UNK
     Route: 048
     Dates: start: 20190409
  71. ENTECAVIR. [Concomitant]
     Active Substance: ENTECAVIR
     Dosage: UNK
     Route: 048
     Dates: start: 20200204
  72. ENTECAVIR. [Concomitant]
     Active Substance: ENTECAVIR
     Dosage: UNK
     Route: 048
     Dates: start: 20200511
  73. HUAI ER KE LI [Concomitant]
     Dosage: UNK
     Route: 048
     Dates: start: 20181017
  74. PVA [Concomitant]
     Dosage: 300?500UM
     Dates: start: 20181211
  75. PVA [Concomitant]
     Dosage: 300?500UM
     Dates: start: 20190702

REACTIONS (5)
  - Off label use [None]
  - Pulmonary mass [None]
  - Hepatocellular carcinoma [None]
  - Hepatic vein embolism [None]
  - Metastases to lung [None]

NARRATIVE: CASE EVENT DATE: 20180821
